FAERS Safety Report 23566149 (Version 1)
Quarter: 2024Q1

REPORT INFORMATION
  Report Type: Spontaneous
  Country: CA (occurrence: None)
  Receive Date: 20240223
  Receipt Date: 20240223
  Transmission Date: 20240410
  Serious: Yes (Hospitalization)
  Sender: FDA-Public Use
  Company Number: None

PATIENT
  Age: 77 Year
  Sex: Female
  Weight: 72.57 kg

DRUGS (11)
  1. LOXAPINE [Suspect]
     Active Substance: LOXAPINE
     Indication: Psychotic disorder
     Dosage: FREQUENCY : AT BEDTIME;?
     Route: 048
     Dates: start: 20231213
  2. LORAZEPAM [Suspect]
     Active Substance: LORAZEPAM
  3. ZUCLOPENTHIXOL [Suspect]
     Active Substance: ZUCLOPENTHIXOL
  4. PALIPERIDONE [Suspect]
     Active Substance: PALIPERIDONE
  5. CADESARTAN [Concomitant]
  6. OLANZAPINE [Concomitant]
     Active Substance: OLANZAPINE
  7. NAPROXEN [Concomitant]
     Active Substance: NAPROXEN
  8. MULTIVITAMIN A [Concomitant]
  9. CALCIUM [Concomitant]
     Active Substance: CALCIUM
  10. THIAMINE [Concomitant]
     Active Substance: THIAMINE
  11. VITAMINS [Concomitant]
     Active Substance: VITAMINS

REACTIONS (3)
  - Vision blurred [None]
  - Drug hypersensitivity [None]
  - Somnolence [None]

NARRATIVE: CASE EVENT DATE: 20240101
